FAERS Safety Report 21286386 (Version 1)
Quarter: 2022Q3

REPORT INFORMATION
  Report Type: Spontaneous
  Country: IT (occurrence: IT)
  Receive Date: 20220902
  Receipt Date: 20220902
  Transmission Date: 20221027
  Serious: Yes (Hospitalization)
  Sender: FDA-Public Use
  Company Number: None

PATIENT
  Age: 77 Year
  Sex: Female

DRUGS (6)
  1. CLONAZEPAM [Suspect]
     Active Substance: CLONAZEPAM
     Indication: Intentional self-injury
     Dosage: THE PATIENT TAKES THE ENTIRE VIAL OF DROPS
     Route: 048
     Dates: start: 20220817, end: 20220817
  2. CLONAZEPAM [Suspect]
     Active Substance: CLONAZEPAM
     Indication: Depression
     Dosage: THE PATIENT TAKES THE ENTIRE VIAL OF DROPS
     Route: 048
     Dates: start: 20220817, end: 20220817
  3. CLONAZEPAM [Suspect]
     Active Substance: CLONAZEPAM
     Indication: Intentional self-injury
     Dosage: PATIENT WAS ALREADY BEING TREATED WITH RIVOTRIL FOR DEPRESSION
  4. CLONAZEPAM [Suspect]
     Active Substance: CLONAZEPAM
     Indication: Depression
     Dosage: PATIENT WAS ALREADY BEING TREATED WITH RIVOTRIL FOR DEPRESSION
  5. AMITRIPTYLINE HYDROCHLORIDE\PERPHENAZINE [Concomitant]
     Active Substance: AMITRIPTYLINE HYDROCHLORIDE\PERPHENAZINE
  6. CIPRALEX [Concomitant]
     Active Substance: ESCITALOPRAM OXALATE

REACTIONS (4)
  - Confusional state [Recovering/Resolving]
  - Substance abuse [Recovering/Resolving]
  - Disorganised speech [Recovering/Resolving]
  - Product use in unapproved indication [Unknown]

NARRATIVE: CASE EVENT DATE: 20220817
